FAERS Safety Report 8058120-9 (Version None)
Quarter: 2012Q1

REPORT INFORMATION
  Report Type: 
  Country: None (occurrence: None)
  Receive Date: 20120118
  Receipt Date: 20120118
  Transmission Date: 20120608
  Serious: No
  Sender: FDA-Public Use
  Company Number: None

PATIENT
  Sex: Male
  Weight: 97.7 kg

DRUGS (2)
  1. RIBAVIRIN [Suspect]
     Dosage: RIBAPAK 400MG PO
     Route: 048
  2. PEGASYS [Suspect]
     Indication: HEPATITIS C
     Dosage: PEGASYS 180MCG SQ
     Route: 058
     Dates: start: 20111104

REACTIONS (4)
  - COLONIC POLYP [None]
  - WEIGHT DECREASED [None]
  - DIVERTICULITIS [None]
  - COLITIS [None]
